FAERS Safety Report 4491842-5 (Version None)
Quarter: 2004Q4

REPORT INFORMATION
  Report Type: 
  Country: None (occurrence: None)
  Receive Date: 20041028
  Receipt Date: 20041028
  Transmission Date: 20050328
  Serious: Yes (Death)
  Sender: FDA-Public Use
  Company Number: None

PATIENT
  Age: 17 Year
  Sex: Male
  Weight: 56.6996 kg

DRUGS (2)
  1. DOXYCYCLINE [Suspect]
     Indication: ACNE
     Dosage: 100 MG BID ORAL
     Route: 048
     Dates: start: 20031230, end: 20040821
  2. AZELAIC ACID [Suspect]
     Indication: ACNE
     Dosage: 20% CREAM BID CUTANEOUS
     Route: 003
     Dates: start: 20040128, end: 20040821

REACTIONS (3)
  - COMPLETED SUICIDE [None]
  - INJURY ASPHYXIATION [None]
  - SOCIAL AVOIDANT BEHAVIOUR [None]
